FAERS Safety Report 8741386 (Version 2)
Quarter: 2012Q4

REPORT INFORMATION
  Report Type: 
  Country: US (occurrence: US)
  Receive Date: 20120824
  Receipt Date: 20121121
  Transmission Date: 20130627
  Serious: No
  Sender: FDA-Public Use
  Company Number: US-ASTRAZENECA-2012SE19277

PATIENT
  Age: 52 Year
  Sex: Male

DRUGS (6)
  1. SYMBICORT PMDI [Suspect]
     Route: 055
  2. NEXIUM [Suspect]
     Route: 048
  3. ALBUTEROL [Concomitant]
  4. ALEVE [Concomitant]
  5. DAYPRO [Concomitant]
  6. PROVENTIL [Concomitant]

REACTIONS (3)
  - Dyspepsia [Unknown]
  - Dementia Alzheimer^s type [Unknown]
  - Memory impairment [Unknown]
